FAERS Safety Report 9462675 (Version 2)
Quarter: 2013Q3

REPORT INFORMATION
  Report Type: Spontaneous
  Country: JP (occurrence: JP)
  Receive Date: 20130816
  Receipt Date: 20130910
  Transmission Date: 20140515
  Serious: Yes (Other)
  Sender: FDA-Public Use
  Company Number: JP-BRISTOL-MYERS SQUIBB COMPANY-19089846

PATIENT
  Age: 83 Year
  Sex: Female
  Weight: 41 kg

DRUGS (2)
  1. ORENCIA FOR INJ [Suspect]
     Indication: RHEUMATOID ARTHRITIS
     Dosage: THERAPY START DATE:22MAR2013?INTER:12FEB13?RESTR:12MAR13
     Route: 041
     Dates: start: 20111208
  2. PREDONINE [Suspect]
     Dosage: TABS?DOSE:15MG:20JAN13-21APR13?14MG:20MAY13-ONG?13MG/MONTH:16JUL13-ONG
     Route: 048
     Dates: start: 20130129

REACTIONS (2)
  - Hepatitis B [Recovered/Resolved]
  - Biliary cirrhosis primary [Recovered/Resolved]
